FAERS Safety Report 7914570-X (Version None)
Quarter: 2011Q4

REPORT INFORMATION
  Report Type: 
  Country: None (occurrence: None)
  Receive Date: 20111115
  Receipt Date: 20111102
  Transmission Date: 20120403
  Serious: Yes (Hospitalization)
  Sender: FDA-Public Use
  Company Number: PHHO2011JP17442

PATIENT
  Sex: Male
  Weight: 55 kg

DRUGS (7)
  1. LANSOPRAZOLE [Concomitant]
     Indication: GASTROOESOPHAGEAL REFLUX DISEASE
     Dosage: UNK
     Route: 048
  2. QVA149 [Suspect]
     Indication: CHRONIC OBSTRUCTIVE PULMONARY DISEASE
     Dosage: UNK
     Dates: start: 20110323
  3. DEXTROMETHORPHAN HYDROBROMIDE [Concomitant]
     Indication: CHRONIC OBSTRUCTIVE PULMONARY DISEASE
     Dosage: UNK
  4. MEFENAMIC ACID [Suspect]
     Indication: PNEUMONIA
     Dosage: 750 MG, QD
     Route: 048
     Dates: start: 20111012, end: 20111012
  5. MUCODYNE [Concomitant]
     Indication: CHRONIC OBSTRUCTIVE PULMONARY DISEASE
     Dosage: UNK
     Route: 048
  6. DIOVAN [Suspect]
     Indication: HYPERTENSION
     Dosage: 80 MG, QD
     Route: 048
     Dates: start: 20110216, end: 20111012
  7. DIOVAN [Suspect]
     Dosage: 80 MG, QD
     Route: 048
     Dates: start: 20111017

REACTIONS (3)
  - DEHYDRATION [None]
  - BRONCHOPNEUMONIA [None]
  - FEMORAL NECK FRACTURE [None]
